FAERS Safety Report 18810379 (Version 1)
Quarter: 2021Q1

REPORT INFORMATION
  Report Type: Spontaneous
  Country: NL (occurrence: NL)
  Receive Date: 20210130
  Receipt Date: 20210130
  Transmission Date: 20210419
  Serious: Yes (Other)
  Sender: FDA-Public Use
  Company Number: NL-AUROBINDO-AUR-APL-2021-003835

PATIENT
  Sex: Male
  Weight: 95 kg

DRUGS (1)
  1. CITALOPRAM 20 MG FILM COATED TABLETS [Suspect]
     Active Substance: CITALOPRAM HYDROBROMIDE
     Indication: DEPRESSION
     Dosage: 20 MILLIGRAM, ONCE A DAY 1X PER DAG 1 STUK (1X PER DAY 1 PIECE)
     Route: 065
     Dates: start: 20170701, end: 20201015

REACTIONS (3)
  - Erectile dysfunction [Not Recovered/Not Resolved]
  - Penile size reduced [Not Recovered/Not Resolved]
  - Genital hypoaesthesia [Not Recovered/Not Resolved]
